FAERS Safety Report 9392031 (Version 1)
Quarter: 2013Q3

REPORT INFORMATION
  Report Type: Spontaneous
  Country: None (occurrence: None)
  Receive Date: 20130705
  Receipt Date: 20130705
  Transmission Date: 20140515
  Serious: Yes (Hospitalization)
  Sender: FDA-Public Use
  Company Number: AT-023365

PATIENT
  Age: 77 Year
  Sex: Male

DRUGS (9)
  1. CHLORAMBUCIL [Suspect]
     Indication: CHRONIC LYMPHOCYTIC LEUKAEMIA
     Dosage: EVERY TWO WEEKS (52 MILLIGRAM, 1 IN 2 WEEKS)
     Route: 048
     Dates: start: 20110202
  2. MABTHERA [Suspect]
     Dosage: 1142 MILLIGRAM, 1 IN 1 MONTHS
     Route: 042
     Dates: start: 20110202
  3. CORENITEC [Concomitant]
  4. AMLODIPIN [Concomitant]
  5. ALLOPURINOL [Concomitant]
  6. SYMBICORT [Concomitant]
  7. AERIUS [Concomitant]
  8. BACTRIM FORTE [Concomitant]
  9. LASIX [Suspect]

REACTIONS (5)
  - Atrial fibrillation [None]
  - Chronic obstructive pulmonary disease [None]
  - Infection [None]
  - Renal failure acute [None]
  - Oedema peripheral [None]
